FAERS Safety Report 8337167-9 (Version None)
Quarter: 2012Q2

REPORT INFORMATION
  Report Type: 
  Country: None (occurrence: None)
  Receive Date: 20120504
  Receipt Date: 20120426
  Transmission Date: 20120825
  Serious: Yes (Other)
  Sender: FDA-Public Use
  Company Number: PHHY2012JP033448

PATIENT
  Sex: Male

DRUGS (3)
  1. ZOLEDRONIC [Suspect]
     Indication: METASTASES TO BONE
     Dosage: 4 MG EVERY 28 DAYS
     Route: 041
  2. DEXAMETHASONE [Suspect]
     Indication: PROSTATE CANCER
     Dosage: 1 MG, DAILY
  3. DOCETAXEL [Suspect]
     Indication: PROSTATE CANCER
     Dosage: 50 MG/M2, EVERY 28 DAYS

REACTIONS (1)
  - OSTEOMYELITIS [None]
